FAERS Safety Report 20365414 (Version 1)
Quarter: 2022Q1

REPORT INFORMATION
  Report Type: Spontaneous
  Country: TW (occurrence: TW)
  Receive Date: 20220122
  Receipt Date: 20220122
  Transmission Date: 20220423
  Serious: Yes (Death, Other)
  Sender: FDA-Public Use
  Company Number: TW-AMGEN-TWNSP2022005528

PATIENT

DRUGS (1)
  1. PROLIA [Suspect]
     Active Substance: DENOSUMAB
     Indication: Osteoporosis
     Dosage: UNK
     Route: 065

REACTIONS (10)
  - Cerebral disorder [Fatal]
  - Cardiovascular disorder [Fatal]
  - Metabolic disorder [Fatal]
  - Neoplasm malignant [Fatal]
  - Infection [Fatal]
  - Accident [Fatal]
  - Neurodegenerative disorder [Fatal]
  - Liver disorder [Fatal]
  - Renal disorder [Fatal]
  - Ill-defined disorder [Fatal]
